FAERS Safety Report 9669594 (Version 1)
Quarter: 2013Q4

REPORT INFORMATION
  Report Type: Spontaneous
  Country: GB (occurrence: GB)
  Receive Date: 20131105
  Receipt Date: 20131105
  Transmission Date: 20140711
  Serious: Yes (Life-Threatening, Hospitalization)
  Sender: FDA-Public Use
  Company Number: PHHY2013GB120709

PATIENT
  Age: 8 Year
  Sex: Male
  Weight: 34 kg

DRUGS (2)
  1. CEFTRIAXONE [Suspect]
     Indication: MENINGITIS
     Route: 042
     Dates: start: 20131014, end: 20131016
  2. PARACETAMOL [Concomitant]
     Indication: PAIN
     Dosage: 500 MG, QID

REACTIONS (3)
  - Tubulointerstitial nephritis [Not Recovered/Not Resolved]
  - Urine output decreased [Unknown]
  - Blood creatinine increased [Unknown]
